FAERS Safety Report 21218567 (Version 1)
Quarter: 2022Q3

REPORT INFORMATION
  Report Type: Spontaneous
  Country: JP (occurrence: JP)
  Receive Date: 20220816
  Receipt Date: 20220816
  Transmission Date: 20221027
  Serious: Yes (Hospitalization)
  Sender: FDA-Public Use
  Company Number: JP-NOVARTISPH-NVSC2022JP180873

PATIENT
  Age: 76 Year
  Sex: Female
  Weight: 62.6 kg

DRUGS (1)
  1. LEVOFLOXACIN [Suspect]
     Active Substance: LEVOFLOXACIN
     Indication: Diverticulitis
     Dosage: 250 MG, QD
     Route: 048

REACTIONS (2)
  - Hypoprothrombinaemia [Recovering/Resolving]
  - Product use in unapproved indication [Unknown]
